FAERS Safety Report 13041851 (Version 1)
Quarter: 2016Q4

REPORT INFORMATION
  Report Type: Spontaneous
  Country: US (occurrence: US)
  Receive Date: 20161219
  Receipt Date: 20161219
  Transmission Date: 20170207
  Serious: No
  Sender: FDA-Public Use
  Company Number: US-ROCHE-1443385

PATIENT
  Sex: Male

DRUGS (2)
  1. MEGACE [Concomitant]
     Active Substance: MEGESTROL ACETATE
  2. ZELBORAF [Suspect]
     Active Substance: VEMURAFENIB
     Indication: MALIGNANT MELANOMA
     Dosage: TAKE 4 TABLETS TWICE A DAY?240 MG TABLETS
     Route: 048

REACTIONS (1)
  - Disease progression [Not Recovered/Not Resolved]
